FAERS Safety Report 9659630 (Version 1)
Quarter: 2013Q4

REPORT INFORMATION
  Report Type: Report from Study
  Country: CA (occurrence: CA)
  Receive Date: 20131031
  Receipt Date: 20131031
  Transmission Date: 20140711
  Serious: Yes (Other)
  Sender: FDA-Public Use
  Company Number: CA-JNJFOC-20131014962

PATIENT
  Age: 76 Year
  Sex: Female
  Weight: 95.2 kg

DRUGS (10)
  1. REMICADE [Suspect]
     Indication: PSORIATIC ARTHROPATHY
     Route: 042
  2. METHOTREXATE [Concomitant]
     Route: 065
  3. ACTONEL [Concomitant]
     Route: 065
  4. ESTRACE [Concomitant]
     Route: 065
  5. SYNTHROID [Concomitant]
     Route: 065
  6. FOLIC ACID [Concomitant]
     Route: 065
  7. PARADEX [Concomitant]
     Route: 065
  8. CYMBALTA [Concomitant]
     Route: 065
  9. LIORESAL [Concomitant]
     Route: 065
  10. BYSTOLIC [Concomitant]
     Route: 065

REACTIONS (3)
  - Wrist fracture [Not Recovered/Not Resolved]
  - Joint dislocation [Not Recovered/Not Resolved]
  - Osteoarthritis [Not Recovered/Not Resolved]
